FAERS Safety Report 18838382 (Version 1)
Quarter: 2021Q1

REPORT INFORMATION
  Report Type: Spontaneous
  Country: US (occurrence: US)
  Receive Date: 20210203
  Receipt Date: 20210203
  Transmission Date: 20210419
  Serious: No
  Sender: FDA-Public Use
  Company Number: US-ALLERGAN-2038569US

PATIENT
  Age: 4 Decade
  Sex: Male

DRUGS (2)
  1. UNKNOWN STIMULANTS [Concomitant]
  2. BOTOX [Suspect]
     Active Substance: ONABOTULINUMTOXINA
     Indication: DYSTONIA
     Dosage: 50 UNITS, SINGLE

REACTIONS (2)
  - Cough [Recovered/Resolved]
  - Aphonia [Recovered/Resolved]
